FAERS Safety Report 19480877 (Version 1)
Quarter: 2021Q3

REPORT INFORMATION
  Report Type: Spontaneous
  Country: US (occurrence: US)
  Receive Date: 20210701
  Receipt Date: 20210701
  Transmission Date: 20211014
  Serious: No
  Sender: FDA-Public Use
  Company Number: US-TEVA-2021-US-1924711

PATIENT
  Sex: Female

DRUGS (2)
  1. NEFAZODONE HYDROCHLORIDE. [Suspect]
     Active Substance: NEFAZODONE HYDROCHLORIDE
     Dosage: 200 MILLIGRAM DAILY;
     Route: 065
  2. NEFAZODONE HYDROCHLORIDE. [Suspect]
     Active Substance: NEFAZODONE HYDROCHLORIDE
     Route: 065
     Dates: start: 2001

REACTIONS (4)
  - Therapy change [Unknown]
  - Adverse event [Unknown]
  - Product availability issue [Unknown]
  - Depression [Unknown]
